FAERS Safety Report 5310204-1 (Version None)
Quarter: 2007Q2

REPORT INFORMATION
  Report Type: 
  Country: None (occurrence: None)
  Receive Date: 20070427
  Receipt Date: 20070418
  Transmission Date: 20071010
  Serious: Yes (Hospitalization, Other)
  Sender: FDA-Public Use
  Company Number: US-PURDUE-USA_2007_0027111

PATIENT
  Sex: Male

DRUGS (1)
  1. OXYCONTIN [Suspect]
     Indication: PAIN
     Dosage: 120 MG, DAILY

REACTIONS (6)
  - COMA [None]
  - DIABETES MELLITUS [None]
  - DRUG DEPENDENCE [None]
  - INADEQUATE ANALGESIA [None]
  - NERVE INJURY [None]
  - SKIN ULCER [None]
